FAERS Safety Report 6774815-9 (Version None)
Quarter: 2010Q2

REPORT INFORMATION
  Report Type: 
  Country: None (occurrence: None)
  Receive Date: 20100617
  Receipt Date: 20100614
  Transmission Date: 20101027
  Serious: Yes (Hospitalization)
  Sender: FDA-Public Use
  Company Number: NL-ROCHE-709328

PATIENT
  Sex: Male

DRUGS (3)
  1. BEVACIZUMAB [Suspect]
     Indication: COLORECTAL CANCER
     Route: 042
     Dates: start: 20100520
  2. CAPECITABINE [Suspect]
     Indication: COLORECTAL CANCER
     Route: 048
     Dates: start: 20100520
  3. OXALIPLATIN [Suspect]
     Indication: COLORECTAL CANCER
     Route: 042

REACTIONS (3)
  - DIARRHOEA [None]
  - MEGACOLON [None]
  - VOMITING [None]
